FAERS Safety Report 8341003 (Version 6)
Quarter: 2015Q3

REPORT INFORMATION
  Report Type: Spontaneous
  Country: US (occurrence: US)
  Receive Date: 20120118
  Receipt Date: 20150803
  Transmission Date: 20151125
  Serious: Yes (Other)
  Sender: FDA-Public Use
  Company Number: US-PFIZER INC-2012008234

PATIENT
  Age: 52 Year
  Sex: Male
  Weight: 86.18 kg

DRUGS (19)
  1. OXYCODONE [Concomitant]
     Active Substance: OXYCODONE
     Indication: PAIN
     Dosage: 5/325MG THREE TIMES A DAY
  2. NEURONTIN [Suspect]
     Active Substance: GABAPENTIN
     Indication: NEURALGIA
     Dosage: 600 MG, 2X/DAY
  3. SKELAXIN [Concomitant]
     Active Substance: METAXALONE
     Indication: MUSCLE SPASMS
     Dosage: 800 MG, 3X/DAY
  4. SKELAXIN [Concomitant]
     Active Substance: METAXALONE
     Dosage: 800 UNKNOWN UNIT, 2X/DAY
  5. OXYCODONE [Concomitant]
     Active Substance: OXYCODONE
     Dosage: 5/325MG FOUR TIMES A DAY
  6. CELEBREX [Suspect]
     Active Substance: CELECOXIB
     Indication: ARTHRALGIA
     Dosage: 200 MG, 2X/DAY
     Dates: start: 1992
  7. FLOMAX [Concomitant]
     Active Substance: TAMSULOSIN HYDROCHLORIDE
     Dosage: 4 MG, 1X/DAY
  8. DIAZEPAM. [Concomitant]
     Active Substance: DIAZEPAM
  9. NEURONTIN [Suspect]
     Active Substance: GABAPENTIN
     Indication: NECK PAIN
     Dosage: 600 MG, 3X/DAY
     Dates: start: 2005
  10. LYRICA [Suspect]
     Active Substance: PREGABALIN
     Dosage: 75 MG, 2X/DAY
  11. CYMBALTA [Concomitant]
     Active Substance: DULOXETINE HYDROCHLORIDE
     Indication: DEPRESSION
     Dosage: 20 MG, UNK
  12. OXYCODONE/APAP [Concomitant]
     Active Substance: ACETAMINOPHEN\OXYCODONE HYDROCHLORIDE
  13. ASPIRIN. [Concomitant]
     Active Substance: ASPIRIN
     Dosage: 80 UNKNOWN UNIT, 1X/DAY
  14. ZETIA [Concomitant]
     Active Substance: EZETIMIBE
     Indication: BLOOD CHOLESTEROL INCREASED
     Dosage: UNK
  15. BOTOX [Concomitant]
     Active Substance: ONABOTULINUMTOXINA
     Indication: MYALGIA
     Dosage: UNK (EVERY 3 MONTHS)
  16. VALIUM [Concomitant]
     Active Substance: DIAZEPAM
     Dosage: 5 MG, AS NEEDED
  17. CELEBREX [Suspect]
     Active Substance: CELECOXIB
     Indication: HEADACHE
  18. PROTONIX [Suspect]
     Active Substance: PANTOPRAZOLE SODIUM
     Indication: GASTROOESOPHAGEAL REFLUX DISEASE
     Dosage: 40 MG, 1X/DAY
     Dates: start: 2005
  19. METAXALONE. [Concomitant]
     Active Substance: METAXALONE
     Dosage: UNK

REACTIONS (1)
  - Pain [Unknown]
